FAERS Safety Report 4588092-0 (Version None)
Quarter: 2005Q1

REPORT INFORMATION
  Report Type: 
  Country: None (occurrence: None)
  Receive Date: 20050216
  Receipt Date: 20050127
  Transmission Date: 20050727
  Serious: Yes (Hospitalization)
  Sender: FDA-Public Use
  Company Number: CA_050107652

PATIENT
  Age: 75 Year
  Sex: Female

DRUGS (3)
  1. FORTEO [Suspect]
     Indication: OSTEOPOROSIS
     Dosage: 20 UG DAY
     Dates: start: 20050113
  2. HYDROMORPHONE [Concomitant]
  3. CALCIUM GLUCONATE [Concomitant]

REACTIONS (6)
  - CYSTITIS [None]
  - FATIGUE [None]
  - MUSCLE SPASMS [None]
  - PAIN [None]
  - PELVIC PAIN [None]
  - POST PROCEDURAL COMPLICATION [None]
